FAERS Safety Report 5572115-6 (Version None)
Quarter: 2007Q4

REPORT INFORMATION
  Report Type: 
  Country: None (occurrence: None)
  Receive Date: 20071221
  Receipt Date: 20071213
  Transmission Date: 20080405
  Serious: Yes (Other)
  Sender: FDA-Public Use
  Company Number: JP-PFIZER INC-2007106085

PATIENT
  Age: 57 Year
  Sex: Male

DRUGS (5)
  1. EPLERENONE TABLET [Suspect]
     Indication: HYPERTENSION
     Dosage: TEXT:TDD:50 MG
     Dates: start: 20071114, end: 20071212
  2. URSO 250 [Concomitant]
  3. NATRIX [Concomitant]
  4. ENTECAVIR [Concomitant]
  5. DRUG USED IN DIABETES [Concomitant]

REACTIONS (1)
  - HYPERGLYCAEMIA [None]
